FAERS Safety Report 6380902-X (Version None)
Quarter: 2009Q3

REPORT INFORMATION
  Report Type: 
  Country: None (occurrence: None)
  Receive Date: 20090929
  Receipt Date: 20090922
  Transmission Date: 20100115
  Serious: Yes (Other)
  Sender: FDA-Public Use
  Company Number: B0594506A

PATIENT
  Sex: Female
  Weight: 38 kg

DRUGS (1)
  1. VENTOLIN [Suspect]
     Indication: DRUG USE FOR UNKNOWN INDICATION
     Route: 065
     Dates: start: 20090406, end: 20090406

REACTIONS (5)
  - ANAPHYLACTIC REACTION [None]
  - FACE OEDEMA [None]
  - HYPOTENSION [None]
  - RASH [None]
  - URTICARIA [None]
